FAERS Safety Report 17210507 (Version 1)
Quarter: 2019Q4

REPORT INFORMATION
  Report Type: Spontaneous
  Country: US (occurrence: US)
  Receive Date: 20191227
  Receipt Date: 20191227
  Transmission Date: 20200122
  Serious: No
  Sender: FDA-Public Use
  Company Number: US-GE HEALTHCARE LIFE SCIENCES-2019CSU003575

PATIENT
  Age: 33 Year
  Sex: Female
  Weight: 91.61 kg

DRUGS (2)
  1. OMNIPAQUE [Suspect]
     Active Substance: IOHEXOL
     Indication: COMPUTERISED TOMOGRAM
     Dosage: 100 ML, SINGLE
     Route: 042
     Dates: start: 20190706, end: 20190706
  2. OMNIPAQUE [Suspect]
     Active Substance: IOHEXOL
     Indication: OROPHARYNGEAL PAIN

REACTIONS (1)
  - Contrast media reaction [Unknown]

NARRATIVE: CASE EVENT DATE: 20190706
